FAERS Safety Report 8474709-7 (Version None)
Quarter: 2012Q2

REPORT INFORMATION
  Report Type: 
  Country: None (occurrence: None)
  Receive Date: 20120628
  Receipt Date: 20120625
  Transmission Date: 20120825
  Serious: Yes (Death, Life-Threatening, Hospitalization, Disabling, Other)
  Sender: FDA-Public Use
  Company Number: US-BAYER-2011-046009

PATIENT
  Age: 47 Year
  Sex: Female
  Weight: 70.3 kg

DRUGS (6)
  1. METOPROLOL TARTRATE [Concomitant]
     Indication: HYPERTENSION
  2. LORAZEPAM [Concomitant]
     Indication: ANXIETY
  3. HYDROCHLOROTHIAZIDE [Concomitant]
     Indication: HYPERTENSION
  4. TEMSIROLIMUS [Suspect]
     Indication: HEPATIC NEOPLASM MALIGNANT
     Dosage: 10 MG, OW
     Route: 042
     Dates: start: 20101015, end: 20110415
  5. BLINDED SORAFENIB (RAF KINASE INHIBITOR) [Suspect]
     Indication: HEPATIC NEOPLASM MALIGNANT
     Dosage: 200 MG, QD
     Dates: start: 20101015, end: 20110422
  6. AMLODIPINE [Concomitant]
     Indication: HYPERTENSION

REACTIONS (4)
  - HEPATIC RUPTURE [None]
  - DISTRIBUTIVE SHOCK [None]
  - PERITONEAL HAEMORRHAGE [None]
  - HEPATIC HAEMORRHAGE [None]
